FAERS Safety Report 16686381 (Version 1)
Quarter: 2019Q3

REPORT INFORMATION
  Report Type: Spontaneous
  Country: DE (occurrence: DE)
  Receive Date: 20190809
  Receipt Date: 20190809
  Transmission Date: 20191004
  Serious: Yes (Congenital Anomaly, Other)
  Sender: FDA-Public Use
  Company Number: DE-TEVA-2019-DE-1090207

PATIENT
  Age: 1 Day
  Sex: Male
  Weight: 2.6 kg

DRUGS (6)
  1. IBUPROFEN. [Concomitant]
     Active Substance: IBUPROFEN
     Indication: TOOTHACHE
     Dosage: 1200 [MG/D ]
     Route: 064
     Dates: start: 20171222, end: 20180105
  2. ASPIRIN. [Concomitant]
     Active Substance: ASPIRIN
     Indication: INFLUENZA LIKE ILLNESS
     Dosage: 1000 [MG/D ]
     Route: 064
     Dates: start: 20171222, end: 20171228
  3. ASPIRIN. [Concomitant]
     Active Substance: ASPIRIN
     Indication: CEREBROVASCULAR ACCIDENT PROPHYLAXIS
     Dosage: 100 [MG/D ]
     Route: 064
     Dates: start: 20171119, end: 20180823
  4. VOMEX A [Concomitant]
     Active Substance: DIMENHYDRINATE
     Indication: MORNING SICKNESS
     Dosage: 300 [MG/D (2X150) ] 2 SEPARATED DOSES
     Route: 064
  5. ATENOLOL. [Suspect]
     Active Substance: ATENOLOL
     Indication: ARRHYTHMIA
     Dosage: 25 [MG/D ]
     Route: 064
     Dates: start: 20171119, end: 20180823
  6. GRIPPEIMPFSTOFF [Concomitant]
     Active Substance: INFLUENZA VIRUS VACCINE
     Indication: IMMUNISATION
     Route: 064

REACTIONS (5)
  - Small for dates baby [Recovered/Resolved]
  - Foetal exposure during pregnancy [Unknown]
  - Cryptorchism [Unknown]
  - Congenital inguinal hernia [Unknown]
  - Hydrocele [Unknown]

NARRATIVE: CASE EVENT DATE: 20180823
